FAERS Safety Report 5499963-5 (Version None)
Quarter: 2007Q4

REPORT INFORMATION
  Report Type: 
  Country: None (occurrence: None)
  Receive Date: 20071026
  Receipt Date: 20071018
  Transmission Date: 20080405
  Serious: Yes (Other)
  Sender: FDA-Public Use
  Company Number: US-GENENTECH-226506

PATIENT
  Sex: Female

DRUGS (3)
  1. RITUXAN [Suspect]
     Indication: WALDENSTROM'S MACROGLOBULINAEMIA
     Dosage: UNK, 1/WEEK
     Route: 042
     Dates: start: 20060201
  2. RITUXAN [Suspect]
     Dates: start: 20051101
  3. CHEMOTHERAPY (UNK INGREDIENTS) [Concomitant]
     Indication: WALDENSTROM'S MACROGLOBULINAEMIA

REACTIONS (2)
  - GASTROINTESTINAL ULCER [None]
  - IRRITABLE BOWEL SYNDROME [None]
